FAERS Safety Report 7473204-1 (Version None)
Quarter: 2011Q2

REPORT INFORMATION
  Report Type: 
  Country: None (occurrence: None)
  Receive Date: 20110511
  Receipt Date: 20110505
  Transmission Date: 20111010
  Serious: Yes (Other)
  Sender: FDA-Public Use
  Company Number: A0926449A

PATIENT
  Age: 73 Year
  Sex: Female

DRUGS (2)
  1. PROMACTA [Suspect]
     Indication: IDIOPATHIC THROMBOCYTOPENIC PURPURA
  2. NO CONCURRENT MEDICATIONS [Concomitant]

REACTIONS (2)
  - MULTIPLE MYELOMA [None]
  - BONE MARROW RETICULIN FIBROSIS [None]
